FAERS Safety Report 4712704-1 (Version None)
Quarter: 2005Q3

REPORT INFORMATION
  Report Type: 
  Country: None (occurrence: None)
  Receive Date: 20050707
  Receipt Date: 20050318
  Transmission Date: 20060218
  Serious: Yes (Other)
  Sender: FDA-Public Use
  Company Number: PHEH2005US01116

PATIENT
  Age: 7 Year
  Sex: Male
  Weight: 21.3 kg

DRUGS (4)
  1. RITALIN LA [Suspect]
     Indication: ATTENTION DEFICIT/HYPERACTIVITY DISORDER
     Dosage: 20 MG, QD, ORAL
     Route: 048
     Dates: start: 20040618, end: 20041228
  2. RITALIN [Suspect]
     Indication: ATTENTION DEFICIT/HYPERACTIVITY DISORDER
     Dosage: QD
     Dates: end: 20041228
  3. CLONIDINE [Concomitant]
  4. BENADRYL (AMMONIUM CHLORIDE, DIPHENHYDRAMINE HYDROCHLORIDE, MENTHOL, S [Concomitant]

REACTIONS (3)
  - AGITATION [None]
  - DISTURBANCE IN SOCIAL BEHAVIOUR [None]
  - PSYCHOTIC DISORDER [None]
